FAERS Safety Report 15088807 (Version 2)
Quarter: 2018Q3

REPORT INFORMATION
  Report Type: Spontaneous
  Country: US (occurrence: US)
  Receive Date: 20180629
  Receipt Date: 20180912
  Transmission Date: 20181010
  Serious: No
  Sender: FDA-Public Use
  Company Number: US-PFIZER INC-2018263662

PATIENT
  Sex: Female

DRUGS (1)
  1. ADVIL [Suspect]
     Active Substance: IBUPROFEN
     Indication: ARTHRITIS
     Dosage: 1 DF, 2X/DAY[TAKING 1 IN THE MORNING AND 1 IN THE EVENING]
     Dates: end: 20180627

REACTIONS (1)
  - Drug ineffective [Unknown]
